FAERS Safety Report 15841295 (Version 1)
Quarter: 2019Q1

REPORT INFORMATION
  Report Type: Spontaneous
  Country: DE (occurrence: DE)
  Receive Date: 20190118
  Receipt Date: 20190118
  Transmission Date: 20190417
  Serious: Yes (Other)
  Sender: FDA-Public Use
  Company Number: DE-TEVA-2019-DE-998046

PATIENT
  Age: 32 Year
  Sex: Male

DRUGS (12)
  1. ACYCLOVIR. [Concomitant]
     Active Substance: ACYCLOVIR
     Indication: ANTIVIRAL PROPHYLAXIS
     Route: 042
  2. MYCOPHENOLATE MOFETIL. [Concomitant]
     Active Substance: MYCOPHENOLATE MOFETIL
     Indication: PNEUMONITIS
     Dosage: 2000 MILLIGRAM DAILY;
     Route: 065
  3. MACITENTAN [Concomitant]
     Active Substance: MACITENTAN
     Indication: PULMONARY ARTERIAL HYPERTENSION
     Dosage: 10 MILLIGRAM DAILY;
     Route: 065
  4. TOFACITINIB [Concomitant]
     Active Substance: TOFACITINIB
     Dosage: 5 MILLIGRAM DAILY; INITIALLY DOSE REDUCED; THEN THE THERAPY WAS DISCONTINUED FOR TWO WEEKS. THE THER
     Route: 065
  5. PREDNISOLONE. [Suspect]
     Active Substance: PREDNISOLONE
     Indication: PNEUMONITIS
     Dosage: 250 MILLIGRAM DAILY; HIGH-DOSE STEROID
     Route: 065
  6. PREDNISOLONE. [Suspect]
     Active Substance: PREDNISOLONE
     Dosage: 15 MILLIGRAM DAILY; THE DOSE COULD NOT BE REDUCED BELOW 15MG DAILY
     Route: 065
  7. SILDENAFIL. [Concomitant]
     Active Substance: SILDENAFIL
     Indication: PULMONARY ARTERIAL HYPERTENSION
     Dosage: 60 MILLIGRAM DAILY;
     Route: 065
  8. TOFACITINIB [Concomitant]
     Active Substance: TOFACITINIB
     Indication: IMMUNOSUPPRESSANT DRUG THERAPY
     Dosage: 10 MILLIGRAM DAILY;
     Route: 065
  9. ILOMEDIN [Concomitant]
     Active Substance: ILOPROST TROMETHAMINE
     Route: 050
  10. CYCLOPHOSPHAMIDE. [Concomitant]
     Active Substance: CYCLOPHOSPHAMIDE
     Indication: PNEUMONITIS
     Route: 050
  11. CICLOSPORIN A [Concomitant]
     Active Substance: CYCLOSPORINE
     Indication: PNEUMONITIS
     Dosage: 200 MILLIGRAM DAILY;
     Route: 065
  12. RITUXIMAB. [Concomitant]
     Active Substance: RITUXIMAB
     Indication: DERMATOMYOSITIS
     Dosage: 3300 MILLIGRAM DAILY;
     Route: 065

REACTIONS (1)
  - Steroid diabetes [Unknown]
